FAERS Safety Report 15753837 (Version 2)
Quarter: 2019Q4

REPORT INFORMATION
  Report Type: Spontaneous
  Country: DK (occurrence: DK)
  Receive Date: 20181222
  Receipt Date: 20191210
  Transmission Date: 20200122
  Serious: Yes (Death, Life-Threatening, Hospitalization)
  Sender: FDA-Public Use
  Company Number: PHHY2018DK185654

PATIENT
  Age: 82 Year
  Sex: Female

DRUGS (5)
  1. ESCITALOPRAM [Suspect]
     Active Substance: ESCITALOPRAM OXALATE
     Indication: SUICIDAL IDEATION
     Dosage: 280 MG, UNK
     Route: 065
  2. ACETAMINOPHEN. [Suspect]
     Active Substance: ACETAMINOPHEN
     Indication: PRODUCT USED FOR UNKNOWN INDICATION
     Dosage: UNK
     Route: 065
  3. VERAPAMIL [Suspect]
     Active Substance: VERAPAMIL HYDROCHLORIDE
     Indication: SUICIDAL IDEATION
     Dosage: 240 MG, UNK (MEDICATION ERROR, MISUSE)
     Route: 065
  4. ESCITALOPRAM [Suspect]
     Active Substance: ESCITALOPRAM OXALATE
     Indication: SUICIDAL IDEATION
     Route: 065
  5. VERAPAMIL [Suspect]
     Active Substance: VERAPAMIL HYDROCHLORIDE
     Dosage: FORMULATION: EXTENDED RELEASE
     Route: 048

REACTIONS (12)
  - Anuria [Fatal]
  - Toxicity to various agents [Fatal]
  - Overdose [Fatal]
  - Cardiotoxicity [Fatal]
  - Muscle spasms [Fatal]
  - Bradycardia [Fatal]
  - Muscle twitching [Fatal]
  - Hypercapnia [Fatal]
  - Somnolence [Fatal]
  - Bundle branch block left [Fatal]
  - Atrial fibrillation [Fatal]
  - Completed suicide [Fatal]
